FAERS Safety Report 5983509-9 (Version None)
Quarter: 2008Q4

REPORT INFORMATION
  Report Type: 
  Country: None (occurrence: None)
  Receive Date: 20081205
  Receipt Date: 20081205
  Transmission Date: 20090506
  Serious: Yes (Life-Threatening)
  Sender: FDA-Public Use
  Company Number: None

PATIENT
  Age: 64 Year
  Sex: Female
  Weight: 74.8435 kg

DRUGS (3)
  1. MACRODANTIN [Suspect]
     Indication: ANTI-INFECTIVE THERAPY
     Dosage: 100MG 1X DAY 047
     Dates: start: 20070101, end: 20071201
  2. MACRODANTIN [Suspect]
     Indication: URINARY TRACT INFECTION
     Dosage: 100MG 1X DAY 047
     Dates: start: 20070101, end: 20071201
  3. MACROBID [Suspect]
     Dosage: 100 MG 1X DAY 047
     Dates: start: 20080101, end: 20080801

REACTIONS (8)
  - ANOREXIA [None]
  - ASTHENIA [None]
  - CHEST DISCOMFORT [None]
  - COUGH [None]
  - DYSGEUSIA [None]
  - HEPATIC CYST [None]
  - HEPATIC ENZYME INCREASED [None]
  - LUNG INFILTRATION [None]
